FAERS Safety Report 11176385 (Version 1)
Quarter: 2015Q2

REPORT INFORMATION
  Report Type: Spontaneous
  Country: GR (occurrence: GR)
  Receive Date: 20150610
  Receipt Date: 20150610
  Transmission Date: 20150821
  Serious: Yes (Death, Other)
  Sender: FDA-Public Use
  Company Number: GR-ROCHE-1590563

PATIENT
  Age: 24 Year
  Sex: Female

DRUGS (2)
  1. MABTHERA [Suspect]
     Active Substance: RITUXIMAB
     Indication: ISCHAEMIA
     Route: 065
  2. CORTISONE [Concomitant]
     Active Substance: CORTISONE\HYDROCORTISONE

REACTIONS (6)
  - Feeling abnormal [Unknown]
  - Off label use [Unknown]
  - Lung disorder [Unknown]
  - Headache [Unknown]
  - Cardiac disorder [Unknown]
  - Myocardial infarction [Fatal]
